FAERS Safety Report 5012069-4 (Version None)
Quarter: 2006Q2

REPORT INFORMATION
  Report Type: 
  Country: None (occurrence: None)
  Receive Date: 20060524
  Receipt Date: 20060517
  Transmission Date: 20061013
  Serious: Yes (Hospitalization)
  Sender: FDA-Public Use
  Company Number: 2005-BP-21832RO

PATIENT
  Age: 73 Year
  Sex: Female

DRUGS (7)
  1. METHOTREXATE [Suspect]
     Dosage: 7.5 MG PER WEEK (1 IN 1 WK), PO
     Route: 048
  2. LANSOPRAZOLE [Concomitant]
  3. AMITRIPTYLINE HCL [Concomitant]
  4. CELECOXIB (CELECOXIB) [Concomitant]
  5. LEVOTHYROXINE SODIUM [Concomitant]
  6. OXYBUTININ (OXYBUTYNIN) [Concomitant]
  7. COPROXAMOL (DI-GESIC) [Concomitant]

REACTIONS (4)
  - CARDIAC FAILURE [None]
  - PANCYTOPENIA [None]
  - PNEUMONIA [None]
  - SEPSIS [None]
